FAERS Safety Report 7447000-5 (Version None)
Quarter: 2011Q2

REPORT INFORMATION
  Report Type: 
  Country: None (occurrence: None)
  Receive Date: 20110429
  Receipt Date: 20110420
  Transmission Date: 20111010
  Serious: Yes (Hospitalization)
  Sender: FDA-Public Use
  Company Number: US-US-EMD SERONO, INC.-232927J10USA

PATIENT
  Sex: Female

DRUGS (3)
  1. REBIF [Suspect]
     Indication: MULTIPLE SCLEROSIS
     Route: 058
     Dates: start: 20080918, end: 20100301
  2. HYDROCODONE BITARTRATE [Concomitant]
     Indication: PAIN
  3. OXYCODONE [Concomitant]
     Indication: PAIN

REACTIONS (8)
  - PYREXIA [None]
  - CHOLECYSTITIS INFECTIVE [None]
  - COGNITIVE DISORDER [None]
  - SLEEP APNOEA SYNDROME [None]
  - PNEUMONIA [None]
  - POOR QUALITY SLEEP [None]
  - INJECTION SITE HAEMATOMA [None]
  - INAPPROPRIATE SCHEDULE OF DRUG ADMINISTRATION [None]
